FAERS Safety Report 4915519-4 (Version None)
Quarter: 2006Q1

REPORT INFORMATION
  Report Type: 
  Country: None (occurrence: None)
  Receive Date: 20060217
  Receipt Date: 20050919
  Transmission Date: 20060701
  Serious: Yes (Hospitalization)
  Sender: FDA-Public Use
  Company Number: US-MERCK-0509USA02871

PATIENT
  Age: 67 Year
  Sex: Female
  Weight: 111 kg

DRUGS (11)
  1. VIOXX [Suspect]
     Indication: ARTHRITIS
     Route: 048
     Dates: start: 20000930, end: 20021028
  2. BEXTRA [Suspect]
     Route: 048
  3. CELEBREX [Suspect]
     Route: 048
  4. LOVASTATIN [Concomitant]
     Route: 065
  5. HYDROCODONE BITARTRATE [Concomitant]
     Route: 065
  6. OXYBUTYNIN [Concomitant]
     Route: 065
  7. ZOCOR [Concomitant]
     Route: 065
  8. ALBUTEROL [Concomitant]
     Route: 065
  9. FUROSEMIDE [Concomitant]
     Route: 065
  10. COZAAR [Concomitant]
     Route: 065
  11. CIPRO [Concomitant]
     Route: 065

REACTIONS (11)
  - CARDIAC FAILURE [None]
  - CEREBROVASCULAR ACCIDENT [None]
  - CHEST PAIN [None]
  - HEPATOCELLULAR DAMAGE [None]
  - MYOCARDIAL INFARCTION [None]
  - NEPHROLITHIASIS [None]
  - OEDEMA PERIPHERAL [None]
  - RENAL DISORDER [None]
  - SKIN INJURY [None]
  - SKIN ULCER [None]
  - THROMBOSIS [None]
